APPROVED DRUG PRODUCT: REMSED
Active Ingredient: PROMETHAZINE HYDROCHLORIDE
Strength: 25MG
Dosage Form/Route: TABLET;ORAL
Application: A083176 | Product #002
Applicant: BRISTOL MYERS SQUIBB PHARMA CO
Approved: Approved Prior to Jan 1, 1982 | RLD: No | RS: No | Type: DISCN